FAERS Safety Report 23098249 (Version 1)
Quarter: 2023Q4

REPORT INFORMATION
  Report Type: Spontaneous
  Country: JP (occurrence: JP)
  Receive Date: 20231023
  Receipt Date: 20231023
  Transmission Date: 20240109
  Serious: Yes (Death)
  Sender: FDA-Public Use
  Company Number: JP-Eisai-202206218_LEN-EC_P_1

PATIENT
  Age: 50 Year
  Sex: Female
  Weight: 50 kg

DRUGS (5)
  1. LENVIMA [Suspect]
     Active Substance: LENVATINIB
     Indication: Endometrial cancer
     Route: 048
     Dates: start: 20220802, end: 20220814
  2. KEYTRUDA [Suspect]
     Active Substance: PEMBROLIZUMAB
     Indication: Endometrial cancer
     Route: 041
     Dates: start: 20220802, end: 20220802
  3. LYRICA [Concomitant]
     Active Substance: PREGABALIN
     Indication: Hypoaesthesia
     Route: 048
     Dates: start: 20220422
  4. CALONAL [Concomitant]
     Active Substance: ACETAMINOPHEN
     Indication: Pain
     Dosage: DOSE AND FREQUENCY UNKNOWN
     Route: 048
     Dates: start: 20220421
  5. URSO [Concomitant]
     Active Substance: URSODIOL
     Indication: Product used for unknown indication
     Route: 048
     Dates: start: 20220413

REACTIONS (5)
  - Myocarditis [Fatal]
  - Malaise [Not Recovered/Not Resolved]
  - Diarrhoea [Not Recovered/Not Resolved]
  - Dysphonia [Not Recovered/Not Resolved]
  - Dyspnoea [Unknown]

NARRATIVE: CASE EVENT DATE: 20220808
